FAERS Safety Report 8309575-3 (Version None)
Quarter: 2012Q2

REPORT INFORMATION
  Report Type: 
  Country: None (occurrence: None)
  Receive Date: 20120425
  Receipt Date: 20120416
  Transmission Date: 20120825
  Serious: Yes (Other)
  Sender: FDA-Public Use
  Company Number: US-BAYER-2012-006081

PATIENT
  Sex: Female
  Weight: 88.435 kg

DRUGS (2)
  1. MIRENA [Suspect]
     Indication: CONTRACEPTION
     Dosage: 20 MCG/24HR, CONT
     Route: 015
     Dates: start: 20090201, end: 20110801
  2. MIRENA [Suspect]
     Dosage: 20 MCG/24HR, CONT
     Route: 015
     Dates: start: 20111001

REACTIONS (7)
  - MENORRHAGIA [None]
  - AMENORRHOEA [None]
  - ABDOMINAL PAIN [None]
  - ABNORMAL WEIGHT GAIN [None]
  - NIGHT SWEATS [None]
  - HOT FLUSH [None]
  - THYROID FUNCTION TEST ABNORMAL [None]
